FAERS Safety Report 19140044 (Version 2)
Quarter: 2021Q2

REPORT INFORMATION
  Report Type: Spontaneous
  Country: US (occurrence: US)
  Receive Date: 20210415
  Receipt Date: 20210427
  Transmission Date: 20210717
  Serious: No
  Sender: FDA-Public Use
  Company Number: US-VERTEX PHARMACEUTICALS-2021-005948

PATIENT
  Age: 32 Year
  Sex: Female
  Weight: 61 kg

DRUGS (14)
  1. VALTREX [Concomitant]
     Active Substance: VALACYCLOVIR HYDROCHLORIDE
     Dosage: 1 TAB;500MG;BID
     Route: 048
  2. HYPERTONIC SALINE SOLUTION [Concomitant]
     Active Substance: SODIUM CHLORIDE
     Dosage: 7%
  3. CETIRIZINE [Concomitant]
     Active Substance: CETIRIZINE HYDROCHLORIDE
     Dosage: 10MG
     Route: 048
  4. TRIKAFTA [Suspect]
     Active Substance: ELEXACAFTOR\IVACAFTOR\TEZACAFTOR
     Indication: CYSTIC FIBROSIS
     Dosage: 2 ORANGE TABS(100MG ELEXACAFTOR/50MG TEZACAFTOR/75MG IVACAFTOR)AM ;1BLUE TAB(150MG IVACAFTOR)
     Route: 048
     Dates: start: 20200108, end: 20200608
  5. ALBUTEROL HFA [Concomitant]
     Active Substance: ALBUTEROL SULFATE
     Dosage: 250 MG;BID
  6. FLUTICASONE. [Concomitant]
     Active Substance: FLUTICASONE
     Dosage: 50 MCG; 1 SPRAY EACH NOSTRIL
     Route: 045
  7. INSULIN GLARGINE [Concomitant]
     Active Substance: INSULIN GLARGINE
     Dosage: 8 UNITS
  8. URSODIOL. [Concomitant]
     Active Substance: URSODIOL
     Dosage: 2 TABS(250 MG TABLET)
     Route: 048
     Dates: start: 20201123, end: 20210216
  9. PULMOZYME [Concomitant]
     Active Substance: DORNASE ALFA
     Dosage: 1 MG/ ML
  10. INSULIN ASPART [Concomitant]
     Active Substance: INSULIN ASPART
  11. CAYSTON [Concomitant]
     Active Substance: AZTREONAM
     Dosage: 1 ML
  12. TRIKAFTA [Suspect]
     Active Substance: ELEXACAFTOR\IVACAFTOR\TEZACAFTOR
     Dosage: UNK
     Route: 048
     Dates: start: 20200726
  13. CREON [Concomitant]
     Active Substance: PANCRELIPASE AMYLASE\PANCRELIPASE LIPASE\PANCRELIPASE PROTEASE
     Dosage: 3 CAPSULES WITH MEALS THREE TIMES A DAY; 2CAPSULES WITH SNACKS 2?3 TIMES A DAY
  14. CHOLECALCIFEROL [Concomitant]
     Active Substance: CHOLECALCIFEROL
     Dosage: 1 CAPSULE TWICE WEEKLY
     Route: 048

REACTIONS (3)
  - Cough [Unknown]
  - Peak expiratory flow rate decreased [Unknown]
  - Chest discomfort [Unknown]
